FAERS Safety Report 7990148-7 (Version None)
Quarter: 2011Q4

REPORT INFORMATION
  Report Type: 
  Country: None (occurrence: None)
  Receive Date: 20111219
  Receipt Date: 20110112
  Transmission Date: 20120403
  Serious: No
  Sender: FDA-Public Use
  Company Number: US-ASTRAZENECA-2011SE02012

PATIENT
  Sex: Female
  Weight: 68 kg

DRUGS (6)
  1. NIASPAN [Suspect]
     Indication: DYSLIPIDAEMIA
     Dosage: AT BEDTIME
  2. NIASPAN [Suspect]
     Indication: HYPERTRIGLYCERIDAEMIA
     Dosage: AT BEDTIME
  3. ACETYLSALICYLIC ACID SRT [Concomitant]
  4. NIASPAN [Suspect]
     Dosage: AT BEDTIME
  5. TOPIRAMATE [Concomitant]
  6. CRESTOR [Suspect]
     Route: 048

REACTIONS (3)
  - MYALGIA [None]
  - MUSCULOSKELETAL STIFFNESS [None]
  - FLUSHING [None]
